FAERS Safety Report 7516581-5 (Version None)
Quarter: 2011Q2

REPORT INFORMATION
  Report Type: 
  Country: None (occurrence: None)
  Receive Date: 20110601
  Receipt Date: 20110526
  Transmission Date: 20111010
  Serious: Yes (Other)
  Sender: FDA-Public Use
  Company Number: AU-GENZYME-CERZ-1002071

PATIENT

DRUGS (1)
  1. CEREZYME [Suspect]
     Indication: GAUCHER'S DISEASE
     Dosage: 3200 U, QW
     Route: 042
     Dates: start: 20110331

REACTIONS (2)
  - PAIN IN EXTREMITY [None]
  - BACK PAIN [None]
